FAERS Safety Report 6647794-2 (Version None)
Quarter: 2010Q1

REPORT INFORMATION
  Report Type: 
  Country: None (occurrence: None)
  Receive Date: 20100324
  Receipt Date: 20100315
  Transmission Date: 20100710
  Serious: Yes (Hospitalization)
  Sender: FDA-Public Use
  Company Number: US-BIOGENIDEC-2010BI006620

PATIENT
  Age: 36 Year
  Sex: Male
  Weight: 77 kg

DRUGS (2)
  1. TYSABRI [Suspect]
     Indication: MULTIPLE SCLEROSIS
     Route: 042
     Dates: start: 20090730
  2. CYMBALTA [Concomitant]
     Indication: DEPRESSION
     Dates: start: 20050101

REACTIONS (3)
  - APPENDICITIS [None]
  - FATIGUE [None]
  - MUSCLE SPASMS [None]
